FAERS Safety Report 11401099 (Version 2)
Quarter: 2015Q4

REPORT INFORMATION
  Report Type: Report from Study
  Country: JP (occurrence: JP)
  Receive Date: 20150820
  Receipt Date: 20151008
  Transmission Date: 20160304
  Serious: Yes (Other)
  Sender: FDA-Public Use
  Company Number: PHHY2013JP132080

PATIENT
  Age: 57 Year
  Sex: Male

DRUGS (38)
  1. CLOZARIL [Suspect]
     Active Substance: CLOZAPINE
     Dosage: 125 MG, QD
     Route: 048
     Dates: start: 20130815, end: 20130925
  2. SENNOSIDE [Concomitant]
     Active Substance: SENNOSIDES
     Indication: SCHIZOPHRENIA, UNDIFFERENTIATED TYPE
     Dosage: 12 MG, QD
     Route: 048
     Dates: start: 20130725
  3. SENNOSIDE [Concomitant]
     Active Substance: SENNOSIDES
     Dosage: 36 MG, QD
     Route: 048
     Dates: start: 20140126, end: 20150725
  4. AMLODIPINE [Concomitant]
     Active Substance: AMLODIPINE BESYLATE
     Indication: HYPERTENSION
     Dosage: 5 MG, QD
     Route: 048
     Dates: start: 20131228, end: 20150725
  5. TANDOSPIRONE CITRATE [Concomitant]
     Active Substance: TANDOSPIRONE CITRATE
     Dosage: 60 MG, QD
     Route: 048
     Dates: start: 20131121, end: 20150725
  6. SODIUM VALPROATE [Concomitant]
     Active Substance: VALPROATE SODIUM
     Dosage: 600 MG, QD
     Route: 048
     Dates: start: 20150417, end: 20150725
  7. CLOZARIL [Suspect]
     Active Substance: CLOZAPINE
     Dosage: 50 MG, QD
     Route: 048
     Dates: start: 20130729, end: 20130731
  8. ARIPIPRAZOLE. [Concomitant]
     Active Substance: ARIPIPRAZOLE
     Dosage: 24 MG, QD
     Route: 048
     Dates: start: 20130801, end: 20130807
  9. ARIPIPRAZOLE. [Concomitant]
     Active Substance: ARIPIPRAZOLE
     Dosage: 6 MG, QD
     Route: 048
     Dates: start: 20130815, end: 20130821
  10. MAGNESIUM OXIDE. [Concomitant]
     Active Substance: MAGNESIUM OXIDE
     Dosage: 1320 MG, QD
     Route: 048
     Dates: start: 20150213, end: 20150725
  11. SODIUM PICOSULPHATE [Concomitant]
     Active Substance: SODIUM PICOSULFATE
     Indication: CONSTIPATION PROPHYLAXIS
     Dosage: 7.5 MG, QD
     Route: 048
     Dates: start: 20140130, end: 20150725
  12. SODIUM VALPROATE [Concomitant]
     Active Substance: VALPROATE SODIUM
     Indication: SCHIZOPHRENIA, UNDIFFERENTIATED TYPE
     Dosage: 400 MG, QD
     Route: 048
     Dates: start: 20141031, end: 20150416
  13. CLOZARIL [Suspect]
     Active Substance: CLOZAPINE
     Indication: SCHIZOPHRENIA, UNDIFFERENTIATED TYPE
     Dosage: 12.5 MG, QD
     Route: 048
     Dates: start: 20130725, end: 20130725
  14. CLOZARIL [Suspect]
     Active Substance: CLOZAPINE
     Dosage: 170 MG, QD
     Route: 048
     Dates: start: 20131114, end: 20131204
  15. CLOZARIL [Suspect]
     Active Substance: CLOZAPINE
     Dosage: 275 MG, QD
     Route: 048
     Dates: start: 20140109, end: 20140115
  16. ARIPIPRAZOLE. [Concomitant]
     Active Substance: ARIPIPRAZOLE
     Indication: SCHIZOPHRENIA, UNDIFFERENTIATED TYPE
     Dosage: 36 MG, QD
     Route: 048
     Dates: start: 20130725, end: 20130731
  17. CLOZARIL [Suspect]
     Active Substance: CLOZAPINE
     Dosage: 250 MG, QD
     Route: 048
     Dates: start: 20131226, end: 20140108
  18. CLOZARIL [Suspect]
     Active Substance: CLOZAPINE
     Dosage: 325 MG, QD
     Route: 048
     Dates: start: 20140130, end: 20140212
  19. CLOZARIL [Suspect]
     Active Substance: CLOZAPINE
     Dosage: 175 MG, QD
     Route: 048
     Dates: start: 20141121
  20. CLOZARIL [Suspect]
     Active Substance: CLOZAPINE
     Dosage: 150 MG, QD
     Route: 048
     Dates: start: 20130926, end: 20131113
  21. CLOZARIL [Suspect]
     Active Substance: CLOZAPINE
     Dosage: 350 MG, QD
     Route: 048
     Dates: start: 20140213, end: 20140219
  22. CLOZARIL [Suspect]
     Active Substance: CLOZAPINE
     Dosage: 200 MG, QD
     Route: 048
     Dates: start: 20140829, end: 20141120
  23. ZOPICLONE [Concomitant]
     Active Substance: ZOPICLONE
     Indication: SCHIZOPHRENIA, UNDIFFERENTIATED TYPE
     Dosage: 10 MG, QD
     Route: 048
     Dates: start: 20130725, end: 20131024
  24. CLOZARIL [Suspect]
     Active Substance: CLOZAPINE
     Dosage: 75 MG, QD
     Route: 048
     Dates: start: 20130801, end: 20130807
  25. CLOZARIL [Suspect]
     Active Substance: CLOZAPINE
     Dosage: 100 MG, QD
     Route: 048
     Dates: start: 20130808, end: 20130814
  26. CLOZARIL [Suspect]
     Active Substance: CLOZAPINE
     Dosage: 300 MG, QD
     Route: 048
     Dates: start: 20140220, end: 20140731
  27. CLOZARIL [Suspect]
     Active Substance: CLOZAPINE
     Dosage: 250 MG, QD
     Route: 048
     Dates: start: 20140801, end: 20140828
  28. ARIPIPRAZOLE. [Concomitant]
     Active Substance: ARIPIPRAZOLE
     Dosage: 12 MG, QD
     Route: 048
     Dates: start: 20130808, end: 20130814
  29. ESZOPICLONE. [Concomitant]
     Active Substance: ESZOPICLONE
     Indication: SCHIZOPHRENIA, UNDIFFERENTIATED TYPE
     Dosage: 3 MG, QD
     Route: 048
     Dates: start: 20131205, end: 20150725
  30. CLOZARIL [Suspect]
     Active Substance: CLOZAPINE
     Dosage: 25 MG, QD
     Route: 048
     Dates: start: 20130726, end: 20130728
  31. CLOZARIL [Suspect]
     Active Substance: CLOZAPINE
     Dosage: 200 MG, QD
     Route: 048
     Dates: start: 20131205, end: 20131218
  32. CLOZARIL [Suspect]
     Active Substance: CLOZAPINE
     Dosage: 225 MG, QD
     Route: 048
     Dates: start: 20131219, end: 20131225
  33. CLOZARIL [Suspect]
     Active Substance: CLOZAPINE
     Dosage: 300 MG, QD
     Route: 048
     Dates: start: 20140116, end: 20140129
  34. CLONAZEPAM. [Concomitant]
     Active Substance: CLONAZEPAM
     Indication: SCHIZOPHRENIA, UNDIFFERENTIATED TYPE
     Dosage: 1.5 MG, QD
     Route: 048
     Dates: start: 20130725, end: 20130925
  35. FLUNITRAZEPAM [Concomitant]
     Active Substance: FLUNITRAZEPAM
     Indication: PROPHYLAXIS
     Dosage: 1 MG, QD
     Route: 048
     Dates: start: 20130725, end: 20131023
  36. FLUNITRAZEPAM [Concomitant]
     Active Substance: FLUNITRAZEPAM
     Dosage: 1 MG, QD
     Route: 048
     Dates: start: 20140220, end: 20150725
  37. MAGNESIUM OXIDE. [Concomitant]
     Active Substance: MAGNESIUM OXIDE
     Indication: CONSTIPATION
     Dosage: 660 MG, QD
     Route: 048
     Dates: start: 20130725, end: 20131024
  38. TANDOSPIRONE CITRATE [Concomitant]
     Active Substance: TANDOSPIRONE CITRATE
     Indication: SCHIZOPHRENIA, UNDIFFERENTIATED TYPE
     Dosage: 30 MG, QD
     Route: 048
     Dates: start: 20130912, end: 20131120

REACTIONS (9)
  - High density lipoprotein decreased [Not Recovered/Not Resolved]
  - Eosinophil percentage increased [Recovered/Resolved]
  - Platelet count decreased [Not Recovered/Not Resolved]
  - Platelet count decreased [Recovered/Resolved]
  - Diabetes mellitus [Recovered/Resolved]
  - Blood creatine phosphokinase decreased [Not Recovered/Not Resolved]
  - Suicidal ideation [Recovered/Resolved]
  - Salivary hypersecretion [Not Recovered/Not Resolved]
  - Platelet count decreased [Recovered/Resolved]

NARRATIVE: CASE EVENT DATE: 20130725
